FAERS Safety Report 12924773 (Version 1)
Quarter: 2016Q4

REPORT INFORMATION
  Report Type: Spontaneous
  Country: US (occurrence: US)
  Receive Date: 20161108
  Receipt Date: 20161108
  Transmission Date: 20170207
  Serious: No
  Sender: FDA-Public Use
  Company Number: None

PATIENT
  Age: 75 Year
  Sex: Male
  Weight: 83.7 kg

DRUGS (1)
  1. PHENYTOIN. [Suspect]
     Active Substance: PHENYTOIN
     Indication: ESSENTIAL TREMOR
     Dosage: MG PO
     Route: 048
     Dates: end: 20160822

REACTIONS (2)
  - Seizure [None]
  - Rash [None]

NARRATIVE: CASE EVENT DATE: 20160822
